FAERS Safety Report 4629402-5 (Version None)
Quarter: 2005Q2

REPORT INFORMATION
  Report Type: 
  Country: None (occurrence: None)
  Receive Date: 20050405
  Receipt Date: 20050322
  Transmission Date: 20051028
  Serious: Yes (Hospitalization)
  Sender: FDA-Public Use
  Company Number: CIP05000709

PATIENT
  Age: 20 Year
  Sex: Male
  Weight: 50.7 kg

DRUGS (9)
  1. RISEDRONATE SODIUM [Suspect]
     Indication: OSTEOPOROSIS
     Dosage: 2.5 MG DAILY, ORAL
     Route: 048
     Dates: start: 20040201, end: 20040522
  2. PREDNISOLONE [Concomitant]
  3. BREDININ (MIZORIBINE) [Concomitant]
  4. SELBEX (TEPRENONE) [Concomitant]
  5. COMELIAN (DILAZEP DIHYDROCHLORIDE) [Concomitant]
  6. FAMOTIDINE [Concomitant]
  7. LOCHOL (FLUVASTATIN SODIUM) [Concomitant]
  8. ALFAROL (ALFACALCIDOL) [Concomitant]
  9. URINORM (BENZBROMARONE) [Concomitant]

REACTIONS (2)
  - PANCREATIC ENLARGEMENT [None]
  - PANCREATITIS ACUTE [None]
